FAERS Safety Report 7877596-0 (Version None)
Quarter: 2011Q4

REPORT INFORMATION
  Report Type: 
  Country: None (occurrence: None)
  Receive Date: 20111031
  Receipt Date: 20111027
  Transmission Date: 20120403
  Serious: Yes (Life-Threatening)
  Sender: FDA-Public Use
  Company Number: TW-ASTRAZENECA-2011SE65263

PATIENT
  Age: 39 Year
  Sex: Male

DRUGS (3)
  1. VALPROIC ACID [Concomitant]
     Indication: BIPOLAR DISORDER
  2. QUETIAPINE [Suspect]
     Indication: BIPOLAR DISORDER
     Route: 048
  3. SULPIRIDE [Concomitant]
     Indication: BIPOLAR DISORDER

REACTIONS (2)
  - HYPERGLYCAEMIC HYPEROSMOLAR NONKETOTIC SYNDROME [None]
  - DIABETIC KETOACIDOSIS [None]
